FAERS Safety Report 8414749-7 (Version None)
Quarter: 2012Q2

REPORT INFORMATION
  Report Type: 
  Country: None (occurrence: None)
  Receive Date: 20120605
  Receipt Date: 20120601
  Transmission Date: 20120825
  Serious: Yes (Hospitalization)
  Sender: FDA-Public Use
  Company Number: DE-AMGEN-DEUSP2012034278

PATIENT
  Sex: Female
  Weight: 90 kg

DRUGS (6)
  1. NEULASTA [Suspect]
     Indication: PRODUCT USED FOR UNKNOWN INDICATION
  2. PLACEBO [Concomitant]
     Dosage: 800 MG, QD
     Route: 048
     Dates: start: 20120602
  3. FILGRASTIM [Concomitant]
  4. SORAFENIB [Concomitant]
     Dosage: 800 MG, QD
     Route: 048
     Dates: start: 20120512
  5. DARBEPOETIN ALFA [Concomitant]
  6. TOPOTECAN [Suspect]
     Indication: PRODUCT USED FOR UNKNOWN INDICATION
     Dosage: 1.25 MG, QD
     Route: 042
     Dates: start: 20120528, end: 20120601

REACTIONS (1)
  - ANAEMIA [None]
